FAERS Safety Report 18691468 (Version 1)
Quarter: 2021Q1

REPORT INFORMATION
  Report Type: Report from Study
  Country: FR (occurrence: FR)
  Receive Date: 20210101
  Receipt Date: 20210101
  Transmission Date: 20210419
  Serious: Yes (Other)
  Sender: FDA-Public Use
  Company Number: FR-TAKEDA-2020TUS060343

PATIENT

DRUGS (1)
  1. RESOLOR [Suspect]
     Active Substance: PRUCALOPRIDE SUCCINATE
     Indication: PRODUCT USED FOR UNKNOWN INDICATION
     Dosage: UNK
     Route: 065

REACTIONS (17)
  - Pleural effusion [Unknown]
  - Depression [Unknown]
  - Cardiac failure [Unknown]
  - Dry eye [Unknown]
  - Pemphigoid [Unknown]
  - Fracture [Unknown]
  - Urinary tract infection [Unknown]
  - Hypersensitivity [Unknown]
  - Cardiovascular disorder [Unknown]
  - Suicidal ideation [Unknown]
  - Teratogenicity [Unknown]
  - Upper respiratory tract infection [Unknown]
  - Intestinal obstruction [Unknown]
  - Nervous system disorder [Unknown]
  - Deafness [Unknown]
  - Bladder cancer [Unknown]
  - Pancreatitis [Unknown]
